FAERS Safety Report 25731095 (Version 3)
Quarter: 2025Q3

REPORT INFORMATION
  Report Type: Spontaneous
  Country: EU (occurrence: EU)
  Receive Date: 20250827
  Receipt Date: 20250916
  Transmission Date: 20251020
  Serious: Yes (Hospitalization)
  Sender: PFIZER
  Company Number: EU-MLMSERVICE-20250815-PI614181-00139-1

PATIENT
  Age: 27 Year
  Sex: Female

DRUGS (1)
  1. ETHINYL ESTRADIOL\LEVONORGESTREL [Suspect]
     Active Substance: ETHINYL ESTRADIOL\LEVONORGESTREL
     Indication: Dysmenorrhoea

REACTIONS (6)
  - Cholelithiasis [Recovering/Resolving]
  - Bile cast nephropathy [Recovering/Resolving]
  - Progressive familial intrahepatic cholestasis [Recovering/Resolving]
  - Hepatic failure [Recovering/Resolving]
  - Pruritus [Recovering/Resolving]
  - Off label use [Unknown]
